FAERS Safety Report 18547028 (Version 3)
Quarter: 2020Q4

REPORT INFORMATION
  Report Type: Spontaneous
  Country: US (occurrence: US)
  Receive Date: 20201125
  Receipt Date: 20201230
  Transmission Date: 20210114
  Serious: No
  Sender: FDA-Public Use
  Company Number: US-PFIZER INC-2020463989

PATIENT
  Age: 77 Year
  Sex: Female
  Weight: 62 kg

DRUGS (2)
  1. IBRANCE [Suspect]
     Active Substance: PALBOCICLIB
     Indication: BREAST CANCER FEMALE
     Dosage: 75 MG, CYCLIC (ONCE DAILY, DAYS 1-21 OF 28 DAY CYCLE), 21 DAYS ON, 7 DAYS OFF
     Route: 048
     Dates: start: 20200826, end: 20201203
  2. IBRANCE [Suspect]
     Active Substance: PALBOCICLIB
     Indication: RHEUMATOID ARTHRITIS

REACTIONS (4)
  - Neutrophil count decreased [Unknown]
  - Platelet count decreased [Unknown]
  - White blood cell count decreased [Unknown]
  - Red blood cell count decreased [Unknown]
